FAERS Safety Report 7436210-9 (Version None)
Quarter: 2011Q2

REPORT INFORMATION
  Report Type: 
  Country: None (occurrence: None)
  Receive Date: 20110425
  Receipt Date: 20110415
  Transmission Date: 20111010
  Serious: Yes (Other)
  Sender: FDA-Public Use
  Company Number: US-AMGEN-USASP2011020398

PATIENT
  Age: 72 Year
  Sex: Male
  Weight: 86.168 kg

DRUGS (6)
  1. NORVASC [Concomitant]
     Dosage: 20 MG, QD
     Route: 048
  2. LIPITOR [Concomitant]
     Dosage: 20 MG, QD
     Route: 048
  3. BENICAR [Concomitant]
     Dosage: UNK UNK, QD
     Route: 048
  4. PROCRIT [Suspect]
     Indication: RENAL FAILURE CHRONIC
     Dosage: 5000 UNIT, UNK
     Route: 058
     Dates: start: 20080101
  5. ULORIC [Concomitant]
     Dosage: 40 MG, QD
     Route: 048
     Dates: start: 20110301
  6. ALLOPURINOL [Concomitant]
     Dosage: UNK
     Dates: end: 20110301

REACTIONS (9)
  - WHITE BLOOD CELL COUNT INCREASED [None]
  - BLOOD GLUCOSE ABNORMAL [None]
  - DYSPEPSIA [None]
  - CELLULITIS [None]
  - INSOMNIA [None]
  - TENDON RUPTURE [None]
  - INJECTION SITE PAIN [None]
  - WEIGHT DECREASED [None]
  - RASH PUSTULAR [None]
